FAERS Safety Report 7519833-8 (Version None)
Quarter: 2011Q2

REPORT INFORMATION
  Report Type: 
  Country: None (occurrence: None)
  Receive Date: 20110602
  Receipt Date: 20110523
  Transmission Date: 20111010
  Serious: Yes (Hospitalization, Other)
  Sender: FDA-Public Use
  Company Number: FR-UCBSA-031298

PATIENT
  Sex: Male

DRUGS (15)
  1. IRBESARTAN [Concomitant]
     Dosage: 150 MG,1 UNIT DAILY
  2. VIMPAT [Suspect]
     Route: 042
     Dates: start: 20110317, end: 20110323
  3. DEPAKENE [Suspect]
     Route: 042
     Dates: start: 20110212, end: 20110220
  4. LOVENOX [Suspect]
     Route: 058
     Dates: start: 20110207, end: 20110221
  5. COLCHICINE [Concomitant]
     Dosage: 1 UNIT DAILY
  6. DEPAKENE [Suspect]
     Route: 042
     Dates: start: 20110221, end: 20110327
  7. LOVENOX [Suspect]
     Route: 058
     Dates: start: 20110310, end: 20110324
  8. VIMPAT [Suspect]
     Route: 042
     Dates: start: 20110324, end: 20110328
  9. DEPAKENE [Suspect]
     Route: 042
     Dates: start: 20110210, end: 20110211
  10. DEPAKENE [Suspect]
     Route: 042
     Dates: start: 20110328, end: 20110402
  11. CELECTOL [Concomitant]
     Dosage: 200 MG,1 UNIT DAILY
  12. URBANYL [Concomitant]
     Dosage: 10 MG,1/2 UNIT DAILY
  13. ALLOPURINOL [Concomitant]
     Dosage: 100 MG,2 UNITS TWICE DAILY
  14. DEPAKENE [Suspect]
     Route: 042
     Dates: start: 20110207, end: 20110209
  15. NEXIUM [Concomitant]
     Dosage: 40 MG,1 UNIT DAILY

REACTIONS (1)
  - THROMBOCYTOPENIA [None]
